FAERS Safety Report 8971731 (Version 2)
Quarter: 2013Q4

REPORT INFORMATION
  Report Type: Spontaneous
  Country: JP (occurrence: JP)
  Receive Date: 20121217
  Receipt Date: 20131031
  Transmission Date: 20140711
  Serious: Yes (Hospitalization)
  Sender: FDA-Public Use
  Company Number: JP-JHP PHARMACEUTICALS, LLC-JHP201200399

PATIENT
  Age: 70 Year
  Sex: Male
  Weight: 42.6 kg

DRUGS (35)
  1. DANTRIUM [Suspect]
     Indication: PAIN IN EXTREMITY
     Dosage: 25 MG, PRN
     Route: 048
     Dates: end: 20120514
  2. COLONEL [Suspect]
     Indication: DIARRHOEA
     Dosage: 1000 MG
     Route: 048
     Dates: end: 20120613
  3. HEPARINOID [Suspect]
     Indication: ECZEMA ASTEATOTIC
     Dosage: UNK
     Route: 061
     Dates: start: 20120428, end: 20120520
  4. HEPARINOID [Suspect]
     Indication: DRUG ERUPTION
  5. ANTEBATE [Suspect]
     Indication: ECZEMA ASTEATOTIC
     Dosage: UNK UNK, BID
     Route: 061
     Dates: start: 20120428, end: 20120520
  6. ANTEBATE [Suspect]
     Indication: DRUG ERUPTION
  7. TALION [Suspect]
     Indication: ECZEMA ASTEATOTIC
     Dosage: 10 MG, BID
     Route: 048
     Dates: start: 20120428, end: 20120511
  8. TALION [Suspect]
     Indication: DRUG ERUPTION
  9. SHAKUYAKUKANZOTO [Suspect]
     Indication: MUSCLE SPASMS
     Dosage: 5 G, BID
     Route: 048
     Dates: start: 20120404, end: 20120502
  10. FERRUM [Concomitant]
     Indication: IRON DEFICIENCY ANAEMIA
     Dosage: 100 MG, QD
     Route: 048
     Dates: end: 20120613
  11. CINAL [Concomitant]
     Indication: IRON DEFICIENCY ANAEMIA
     Dosage: 1 G, QD
     Route: 048
     Dates: end: 20120613
  12. ZYLORIC [Concomitant]
     Indication: HYPERURICAEMIA
     Dosage: 100 MG, BID
     Route: 048
     Dates: end: 20120613
  13. DIOVAN [Concomitant]
     Indication: HYPERTENSION
     Dosage: 80 MG, QD
     Route: 048
     Dates: end: 20120613
  14. LASIX [Concomitant]
     Indication: RENAL FAILURE CHRONIC
     Dosage: 40 MG, PRN
     Route: 048
     Dates: end: 20120613
  15. FLUITRAN [Concomitant]
     Indication: RENAL FAILURE CHRONIC
     Dosage: 2 MG, PRN
     Route: 048
     Dates: end: 20120613
  16. NAUZELIN [Concomitant]
     Indication: OESOPHAGITIS
     Dosage: 10 MG, TID
     Route: 048
     Dates: start: 20120413, end: 20120613
  17. NAUZELIN [Concomitant]
     Indication: DECREASED APPETITE
  18. ADETPHOS [Concomitant]
     Indication: MUSCLE SPASMS
     Dosage: 120 MG, QD
     Route: 048
     Dates: end: 20120613
  19. MEQUITOLIDE [Concomitant]
     Indication: HYPOAESTHESIA
     Dosage: 100 MG, QD
     Route: 048
     Dates: end: 20120613
  20. BUSCOPAN [Concomitant]
     Indication: DIARRHOEA
     Dosage: 20 MG, QD
     Route: 048
     Dates: end: 20120613
  21. MEPIVACAINE HYDROCHLORIDE [Concomitant]
     Indication: OSTEOARTHRITIS
     Dosage: UNK
     Dates: end: 201206
  22. EPEL [Concomitant]
     Indication: PAIN IN EXTREMITY
     Dosage: 100 MG, QD
     Route: 048
     Dates: end: 20120613
  23. WARFARIN [Concomitant]
     Indication: DEEP VEIN THROMBOSIS
     Dosage: 1 MG, QD
     Route: 048
     Dates: start: 20120528, end: 20120613
  24. NESP [Concomitant]
     Indication: NEPHROGENIC ANAEMIA
     Dosage: 120 UG MONTHLY
     Dates: end: 20120427
  25. PATELL [Concomitant]
     Indication: OSTEOARTHRITIS
     Dosage: UNK
     Route: 061
     Dates: end: 20120613
  26. MILTAX [Concomitant]
     Indication: OSTEOARTHRITIS
     Dosage: UNK
     Route: 061
     Dates: end: 20120613
  27. ARTZ DISPO [Concomitant]
     Indication: OSTEOARTHRITIS
     Dosage: 25 MG Q2W
     Route: 014
     Dates: end: 201206
  28. BERAPROST SODIUM [Concomitant]
     Dosage: UNK
     Dates: start: 20110621, end: 20110822
  29. GENTACIN [Concomitant]
     Dosage: UNK
     Dates: start: 20110531, end: 20110606
  30. FLOMOX [Concomitant]
     Dosage: UNK
     Route: 048
     Dates: start: 20110531, end: 20110602
  31. INFLUENZA [Concomitant]
     Dosage: UNK
     Dates: start: 20111031, end: 20111031
  32. XYZAL [Concomitant]
     Dosage: UNK
     Dates: start: 20120305, end: 20120309
  33. MUCOSOLVAN L [Concomitant]
     Dosage: UNK
     Dates: start: 20120305, end: 20120309
  34. SP [Concomitant]
     Dosage: UNK
     Dates: start: 20120305, end: 20120309
  35. LAXATIVE [Concomitant]
     Dosage: UNK
     Dates: start: 20120410, end: 20120410

REACTIONS (4)
  - Intentional drug misuse [Recovered/Resolved]
  - Calculus ureteric [Recovered/Resolved]
  - Vomiting [Recovered/Resolved]
  - Abdominal pain [Recovered/Resolved]
